FAERS Safety Report 8644940 (Version 3)
Quarter: 2013Q1

REPORT INFORMATION
  Report Type: Spontaneous
  Country: US (occurrence: US)
  Receive Date: 20120702
  Receipt Date: 20130215
  Transmission Date: 20140127
  Serious: Yes (Hospitalization)
  Sender: FDA-Public Use
  Company Number: US-BAYER-2012-062514

PATIENT
  Age: 44 Year
  Sex: Female
  Weight: 112.47 kg

DRUGS (16)
  1. GIANVI [Suspect]
     Dosage: UNK
     Dates: end: 201108
  2. YASMIN [Suspect]
  3. YAZ [Suspect]
     Dosage: UNK
     Dates: start: 200709, end: 201108
  4. OCELLA [Suspect]
  5. CITALOPRAM [Concomitant]
     Indication: SLEEP DISORDER
     Dosage: 20 MG, DAILY
     Route: 048
     Dates: start: 2010
  6. CITALOPRAM [Concomitant]
     Indication: DEPRESSION
  7. VITAMIN D [Concomitant]
     Dosage: 2000 IU, DAILY
     Route: 048
  8. ASA [Concomitant]
     Dosage: UNK, PRN
     Route: 048
  9. SYNTHROID [Concomitant]
     Indication: HYPOTHYROIDISM
     Dosage: 200 ?G, DAILY
     Route: 048
     Dates: start: 2010
  10. BENADRYL [Concomitant]
     Dosage: 50 MG 1 HOUR PRIOR TO CT SCAN
     Route: 048
  11. DICLOFENAC [Concomitant]
  12. PREDNISONE [Concomitant]
     Dosage: 20 MG, 1 TABLET BID
     Route: 048
  13. PREDNISONE [Concomitant]
     Dosage: 50 MG, UNK
     Route: 048
  14. OXYCODONE W/PARACETAMOL [Concomitant]
     Dosage: 5MG - 325 MG 1 TABLET EVERY 4 TO 6 HOURS AS NEEDED
     Route: 048
  15. CIMETIDINE [Concomitant]
     Dosage: 1 TABLET 1 HOUR PRIOR TO CT SCAN
     Route: 048
  16. SIMVASTATIN [Concomitant]
     Indication: HYPERLIPIDAEMIA
     Dosage: 20 MG, ONCE

REACTIONS (8)
  - Peripheral artery thrombosis [Recovered/Resolved]
  - Peripheral artery thrombosis [Recovered/Resolved]
  - Peripheral artery thrombosis [None]
  - Injury [None]
  - Pain [None]
  - Off label use [None]
  - Dysstasia [Recovered/Resolved]
  - Impaired work ability [Recovered/Resolved]
